FAERS Safety Report 9549525 (Version 2)
Quarter: 2013Q4

REPORT INFORMATION
  Report Type: Spontaneous
  Country: US (occurrence: US)
  Receive Date: 20130924
  Receipt Date: 20131231
  Transmission Date: 20140711
  Serious: Yes (Hospitalization)
  Sender: FDA-Public Use
  Company Number: US-ABBVIE-13P-163-1149383-00

PATIENT
  Age: 66 Year
  Sex: Female
  Weight: 81.2 kg

DRUGS (2)
  1. HUMIRA [Suspect]
     Indication: PRODUCT USED FOR UNKNOWN INDICATION
     Dates: start: 20130711, end: 201309
  2. AUGMENTIN [Suspect]
     Indication: PRODUCT USED FOR UNKNOWN INDICATION

REACTIONS (4)
  - Jaundice [Recovered/Resolved]
  - Hepatic enzyme increased [Unknown]
  - Hypertension [Unknown]
  - Psoriasis [Unknown]
